FAERS Safety Report 24315952 (Version 2)
Quarter: 2025Q2

REPORT INFORMATION
  Report Type: Spontaneous
  Country: AU (occurrence: AU)
  Receive Date: 20240913
  Receipt Date: 20250609
  Transmission Date: 20250717
  Serious: Yes (Hospitalization, Other)
  Sender: RANBAXY
  Company Number: AU-SUN PHARMACEUTICAL INDUSTRIES LTD-2024R1-466638

PATIENT

DRUGS (4)
  1. QUETIAPINE [Suspect]
     Active Substance: QUETIAPINE
     Indication: Product used for unknown indication
     Route: 048
  2. ESCITALOPRAM [Suspect]
     Active Substance: ESCITALOPRAM OXALATE
     Indication: Product used for unknown indication
     Route: 048
  3. VALPROIC ACID [Suspect]
     Active Substance: VALPROIC ACID
     Indication: Product used for unknown indication
     Route: 048
  4. ORPHENADRINE [Suspect]
     Active Substance: ORPHENADRINE
     Indication: Intentional overdose
     Route: 048

REACTIONS (5)
  - Toxicity to various agents [Unknown]
  - Delirium [Unknown]
  - Intentional overdose [Unknown]
  - Somnolence [Unknown]
  - Tachycardia [Unknown]
